FAERS Safety Report 25008869 (Version 1)
Quarter: 2025Q1

REPORT INFORMATION
  Report Type: Spontaneous
  Country: CN (occurrence: CN)
  Receive Date: 20250225
  Receipt Date: 20250225
  Transmission Date: 20250408
  Serious: Yes (Other)
  Sender: BRISTOL-MYERS SQUIBB COMPANY
  Company Number: CN-MLMSERVICE-20250215-PI386541-00255-2

PATIENT
  Age: 39 Year
  Sex: Male

DRUGS (4)
  1. PACLITAXEL [Suspect]
     Active Substance: PACLITAXEL
     Indication: Anaplastic thyroid cancer
     Dosage: DAY 1, EVERY 2 WEEKS, FOURTH-LINE THERAPY
     Route: 042
     Dates: start: 202111, end: 2022
  2. PACLITAXEL [Suspect]
     Active Substance: PACLITAXEL
     Indication: Malignant neoplasm progression
  3. ZIMBERELIMAB [Suspect]
     Active Substance: ZIMBERELIMAB
     Indication: Anaplastic thyroid cancer
     Dosage: DAY 1, EVERY 2 WEEKS, FOURTH-LINE THERAPY
     Route: 042
     Dates: start: 202111, end: 2022
  4. ZIMBERELIMAB [Suspect]
     Active Substance: ZIMBERELIMAB
     Indication: Malignant neoplasm progression

REACTIONS (2)
  - Immune-mediated hypothyroidism [Recovering/Resolving]
  - Off label use [Unknown]

NARRATIVE: CASE EVENT DATE: 20220401
